FAERS Safety Report 19769243 (Version 1)
Quarter: 2021Q3

REPORT INFORMATION
  Report Type: Spontaneous
  Country: US (occurrence: US)
  Receive Date: 20210827
  Receipt Date: 20210827
  Transmission Date: 20211014
  Serious: Yes (Hospitalization)
  Sender: FDA-Public Use
  Company Number: None

PATIENT
  Sex: Female

DRUGS (1)
  1. BENLYSTA [Suspect]
     Active Substance: BELIMUMAB
     Indication: SYSTEMIC LUPUS ERYTHEMATOSUS
     Route: 058

REACTIONS (5)
  - Drug hypersensitivity [None]
  - Systemic lupus erythematosus [None]
  - Chest pain [None]
  - Oropharyngeal discomfort [None]
  - Pharyngeal swelling [None]
